FAERS Safety Report 10632017 (Version 1)
Quarter: 2014Q4

REPORT INFORMATION
  Report Type: Spontaneous
  Country: NL (occurrence: None)
  Receive Date: 20141203
  Receipt Date: 20141203
  Transmission Date: 20150529
  Serious: Yes (Death, Hospitalization)
  Sender: FDA-Public Use
  Company Number: 2012R1-55515

PATIENT
  Age: 79 Year
  Sex: Male

DRUGS (8)
  1. SIMVASTATIN. [Suspect]
     Active Substance: SIMVASTATIN
     Indication: PRODUCT USED FOR UNKNOWN INDICATION
  2. AMOXICILLIN/CLAVULANATE [Suspect]
     Active Substance: AMOXICILLIN\CLAVULANATE POTASSIUM
     Indication: ANTIBIOTIC THERAPY
     Dosage: 1 DF
     Route: 042
  3. METOPROLOL [Suspect]
     Active Substance: METOPROLOL
     Indication: PRODUCT USED FOR UNKNOWN INDICATION
  4. CLOPIDOGREL [Suspect]
     Active Substance: CLOPIDOGREL BISULFATE
     Indication: PRODUCT USED FOR UNKNOWN INDICATION
     Dosage: LOADING DOSE
  5. CIPROFLOXACIN (CIPROFLOXACIN) [Suspect]
     Active Substance: CIPROFLOXACIN
     Indication: ANTIBIOTIC THERAPY
  6. NADROPARIN [Suspect]
     Active Substance: NADROPARIN
     Indication: PRODUCT USED FOR UNKNOWN INDICATION
     Dosage: 7600 ANTI-XA UNITS TWICE DAILY
  7. ERLOTINIB [Suspect]
     Active Substance: ERLOTINIB
     Indication: NON-SMALL CELL LUNG CANCER
  8. CARBASALATE CALCIUM [Suspect]
     Active Substance: CARBASALATE
     Indication: PRODUCT USED FOR UNKNOWN INDICATION
     Dosage: LOADING DOSE OF

REACTIONS (8)
  - Rash [None]
  - Respiratory failure [None]
  - Pleural effusion [None]
  - Interstitial lung disease [None]
  - Cardiac failure [None]
  - Myocardial infarction [None]
  - Drug level increased [None]
  - Drug interaction [None]
